FAERS Safety Report 18340116 (Version 3)
Quarter: 2021Q2

REPORT INFORMATION
  Report Type: Report from Study
  Country: US (occurrence: US)
  Receive Date: 20201002
  Receipt Date: 20210419
  Transmission Date: 20210717
  Serious: Yes (Hospitalization)
  Sender: FDA-Public Use
  Company Number: US-EISAI MEDICAL RESEARCH-EC-2020-073441

PATIENT
  Age: 67 Year
  Sex: Female
  Weight: 92 kg

DRUGS (31)
  1. LENVIMA [Suspect]
     Active Substance: LENVATINIB
     Route: 048
  2. LOW DOSE ASPIRIN [Concomitant]
     Active Substance: ASPIRIN
  3. PANTOPRAZOLE [Concomitant]
     Active Substance: PANTOPRAZOLE
  4. KLOR?CON [Concomitant]
     Active Substance: POTASSIUM CHLORIDE
  5. CLARITIN [Concomitant]
     Active Substance: LORATADINE
  6. CELECOXIB. [Concomitant]
     Active Substance: CELECOXIB
  7. METOPROLOL. [Concomitant]
     Active Substance: METOPROLOL
  8. IMODIUM [Concomitant]
     Active Substance: LOPERAMIDE HYDROCHLORIDE
  9. LEVOFLOXACIN. [Concomitant]
     Active Substance: LEVOFLOXACIN
  10. TIZANIDINE HCL [Concomitant]
     Active Substance: TIZANIDINE HYDROCHLORIDE
  11. HYDROCORTISONE. [Concomitant]
     Active Substance: HYDROCORTISONE
  12. LENVIMA [Suspect]
     Active Substance: LENVATINIB
     Indication: ENDOMETRIAL CANCER
     Route: 048
     Dates: start: 202002
  13. COMBIVENT [Concomitant]
     Active Substance: ALBUTEROL SULFATE\IPRATROPIUM BROMIDE
  14. METFORMIN HCL [Concomitant]
     Active Substance: METFORMIN HYDROCHLORIDE
  15. NITROFURANTOIN. [Concomitant]
     Active Substance: NITROFURANTOIN
  16. NITROSTAT [Concomitant]
     Active Substance: NITROGLYCERIN
  17. DIGOXIN. [Concomitant]
     Active Substance: DIGOXIN
  18. LEVOTHYROXINE SODIUM. [Concomitant]
     Active Substance: LEVOTHYROXINE SODIUM
  19. LOPERAMIDE [Concomitant]
     Active Substance: LOPERAMIDE
  20. NASACORT [Concomitant]
     Active Substance: TRIAMCINOLONE ACETONIDE
  21. OXYCODONE HYDROCHLORIDE. [Concomitant]
     Active Substance: OXYCODONE HYDROCHLORIDE
  22. KEYTRUDA [Concomitant]
     Active Substance: PEMBROLIZUMAB
  23. CIPROFLOXACIN. [Concomitant]
     Active Substance: CIPROFLOXACIN
  24. CARISOPRODOL. [Concomitant]
     Active Substance: CARISOPRODOL
  25. GABAPENTIN. [Concomitant]
     Active Substance: GABAPENTIN
  26. ONDANSETRON [Concomitant]
     Active Substance: ONDANSETRON
  27. TYLENOL EXTRA STRENGTH [Concomitant]
     Active Substance: ACETAMINOPHEN
  28. VITAMIN B12 [Concomitant]
     Active Substance: CYANOCOBALAMIN
  29. ATORVASTATIN [Concomitant]
     Active Substance: ATORVASTATIN
  30. GLIPIZIDE?METFORMIN [Concomitant]
  31. CELEBREX [Concomitant]
     Active Substance: CELECOXIB

REACTIONS (20)
  - Chromaturia [Unknown]
  - Diarrhoea [Not Recovered/Not Resolved]
  - Muscle spasms [Unknown]
  - Taste disorder [Unknown]
  - Dehydration [Unknown]
  - Dysuria [Unknown]
  - Vomiting [Unknown]
  - Blood pressure increased [Recovered/Resolved]
  - Urine output decreased [Unknown]
  - Malignant neoplasm progression [Unknown]
  - Stomatitis [Unknown]
  - Nausea [Unknown]
  - Abdominal pain upper [Unknown]
  - Headache [Unknown]
  - Hallucination [Unknown]
  - Decreased appetite [Recovering/Resolving]
  - Renal impairment [Unknown]
  - Back pain [Unknown]
  - Weight decreased [Not Recovered/Not Resolved]
  - Hypophagia [Unknown]

NARRATIVE: CASE EVENT DATE: 2020
